FAERS Safety Report 10570660 (Version 1)
Quarter: 2014Q4

REPORT INFORMATION
  Report Type: Spontaneous
  Country: US (occurrence: None)
  Receive Date: 20141106
  Receipt Date: 20141106
  Transmission Date: 20150529
  Serious: No
  Sender: FDA-Public Use
  Company Number: None

PATIENT
  Age: 54 Year
  Sex: Female

DRUGS (1)
  1. WALGREENS COLD SORE TREATMENT [Suspect]
     Active Substance: BENZALKONIUM CHLORIDE\CAMPHOR (SYNTHETIC)
     Indication: ORAL HERPES
     Dates: start: 20141105, end: 20141105

REACTIONS (1)
  - Product packaging issue [None]

NARRATIVE: CASE EVENT DATE: 20141105
